FAERS Safety Report 6018335-8 (Version None)
Quarter: 2008Q4

REPORT INFORMATION
  Report Type: 
  Country: None (occurrence: None)
  Receive Date: 20081217
  Receipt Date: 20081006
  Transmission Date: 20090506
  Serious: No
  Sender: FDA-Public Use
  Company Number: US-WYE-H06283508

PATIENT
  Age: 74 Year
  Sex: Male
  Weight: 74 kg

DRUGS (4)
  1. TORISEL [Suspect]
     Indication: RENAL CELL CARCINOMA
     Dosage: 25 MG 1X PER 1 WK, INTRAVENOUS
     Route: 042
     Dates: start: 20080624, end: 20080930
  2. ADVAIR DISKUS 100/50 [Concomitant]
  3. FLONASE [Concomitant]
  4. PROVENTIL INHALER (SALBUTAMOL) [Concomitant]

REACTIONS (1)
  - LUNG DISORDER [None]
